FAERS Safety Report 15015414 (Version 1)
Quarter: 2018Q2

REPORT INFORMATION
  Report Type: Spontaneous
  Country: US (occurrence: US)
  Receive Date: 20180615
  Receipt Date: 20180615
  Transmission Date: 20180711
  Serious: Yes (Hospitalization, Other)
  Sender: FDA-Public Use
  Company Number: US-GLAXOSMITHKLINE-US2018106498

PATIENT
  Age: 70 Year
  Sex: Female

DRUGS (12)
  1. BREO ELLIPTA [Suspect]
     Active Substance: FLUTICASONE FUROATE\VILANTEROL TRIFENATATE
     Indication: CHRONIC OBSTRUCTIVE PULMONARY DISEASE
     Dosage: 1 PUFF(S), QD
  2. ZOLOFT [Concomitant]
     Active Substance: SERTRALINE HYDROCHLORIDE
  3. TRELEGY ELLIPTA [Suspect]
     Active Substance: FLUTICASONE FUROATE\UMECLIDINIUM BROMIDE\VILANTEROL TRIFENATATE
     Indication: CHRONIC OBSTRUCTIVE PULMONARY DISEASE
     Dosage: 1 PUFF(S), QD
     Dates: start: 20180606
  4. ASPIRIN (BABY) [Concomitant]
     Active Substance: ASPIRIN
  5. OXYBUTYNIN. [Concomitant]
     Active Substance: OXYBUTYNIN CHLORIDE
  6. VITAMIN D3 [Concomitant]
     Active Substance: CHOLECALCIFEROL
  7. ALLOPURINOL. [Concomitant]
     Active Substance: ALLOPURINOL
  8. AMLODIPINE [Concomitant]
     Active Substance: AMLODIPINE BESYLATE
  9. ATORVASTATIN [Concomitant]
     Active Substance: ATORVASTATIN
  10. RANITIDINE. [Concomitant]
     Active Substance: RANITIDINE
  11. SYNTHROID [Concomitant]
     Active Substance: LEVOTHYROXINE SODIUM
  12. SPIRIVA [Concomitant]
     Active Substance: TIOTROPIUM BROMIDE MONOHYDRATE

REACTIONS (20)
  - Chemotherapy [Recovered/Resolved]
  - Eye irritation [Recovered/Resolved]
  - Abnormal sensation in eye [Recovered/Resolved]
  - Fungal infection [Unknown]
  - Cough [Not Recovered/Not Resolved]
  - Malaise [Unknown]
  - Chronic lymphocytic leukaemia [Recovered/Resolved]
  - Obstructive airways disorder [Unknown]
  - Drug dose omission [Unknown]
  - Pollakiuria [Not Recovered/Not Resolved]
  - Biopsy lung [Unknown]
  - Renal impairment [Unknown]
  - Dehydration [Unknown]
  - Staphylococcal infection [Recovered/Resolved]
  - Condition aggravated [Not Recovered/Not Resolved]
  - Hypertonic bladder [Unknown]
  - Rash [Recovered/Resolved]
  - Blood uric acid increased [Unknown]
  - White blood cell count increased [Recovered/Resolved]
  - Conjunctivitis [Recovered/Resolved]

NARRATIVE: CASE EVENT DATE: 2013
